FAERS Safety Report 15347906 (Version 2)
Quarter: 2018Q3

REPORT INFORMATION
  Report Type: Spontaneous
  Country: GB (occurrence: GB)
  Receive Date: 20180904
  Receipt Date: 20180915
  Transmission Date: 20181010
  Serious: Yes (Other)
  Sender: FDA-Public Use
  Company Number: GB-009507513-2009-195837-NL

PATIENT
  Age: 30 Year
  Sex: Female
  Weight: 66 kg

DRUGS (2)
  1. IMPLANON [Suspect]
     Active Substance: ETONOGESTREL
     Dosage: CONTINUING: UNK
     Route: 059
     Dates: start: 20080521
  2. IMPLANON [Suspect]
     Active Substance: ETONOGESTREL
     Indication: CONTRACEPTION
     Dosage: CONTINUING: UNK
     Route: 059
     Dates: start: 20080521

REACTIONS (3)
  - Pregnancy with implant contraceptive [Unknown]
  - Localised infection [Unknown]
  - Keloid scar [Unknown]

NARRATIVE: CASE EVENT DATE: 200808
